FAERS Safety Report 12217381 (Version 1)
Quarter: 2016Q1

REPORT INFORMATION
  Report Type: Spontaneous
  Country: CN (occurrence: CN)
  Receive Date: 20160329
  Receipt Date: 20160329
  Transmission Date: 20160526
  Serious: Yes (Other)
  Sender: FDA-Public Use
  Company Number: CN-BAXTER-2016BAX016788

PATIENT
  Age: 58 Year
  Sex: Female
  Weight: 62 kg

DRUGS (2)
  1. LEFT LEUCOVORIN [Suspect]
     Active Substance: LEUCOVORIN
     Indication: GASTRIC CANCER
     Route: 041
     Dates: start: 20150917, end: 20150917
  2. 5% GLUCOSE  INJECTION [Suspect]
     Active Substance: DEXTROSE
     Indication: INFUSION
     Route: 041
     Dates: start: 20150917, end: 20150917

REACTIONS (3)
  - Cyanosis [Recovered/Resolved]
  - Chills [Recovered/Resolved]
  - Infusion related reaction [None]

NARRATIVE: CASE EVENT DATE: 20150917
